FAERS Safety Report 7393853-9 (Version None)
Quarter: 2011Q2

REPORT INFORMATION
  Report Type: 
  Country: None (occurrence: None)
  Receive Date: 20110405
  Receipt Date: 20110329
  Transmission Date: 20111010
  Serious: Yes (Hospitalization)
  Sender: FDA-Public Use
  Company Number: FR-SANOFI-AVENTIS-2011SA018807

PATIENT
  Age: 75 Year
  Sex: Female

DRUGS (12)
  1. RIFADIN [Suspect]
     Dates: start: 20101118, end: 20101203
  2. BACTRIM [Suspect]
     Route: 048
     Dates: start: 20101217, end: 20110118
  3. BACTRIM [Suspect]
     Dates: start: 20101118, end: 20101203
  4. DOMPERIDONE [Concomitant]
     Route: 048
  5. CALCIUM FOLINATE [Concomitant]
     Route: 048
  6. RIFADIN [Suspect]
     Route: 048
     Dates: start: 20101217, end: 20110118
  7. LOVENOX [Concomitant]
     Route: 058
  8. IRBESARTAN [Concomitant]
     Route: 048
  9. CLOZAPINE [Suspect]
     Indication: DEPRESSED MOOD
     Route: 048
     Dates: start: 20101221, end: 20110119
  10. FORLAX [Concomitant]
     Route: 048
  11. DIFFU K [Concomitant]
     Route: 048
  12. SINEMET [Concomitant]
     Indication: PARKINSON'S DISEASE
     Route: 065

REACTIONS (4)
  - PANCYTOPENIA [None]
  - LEUKOPENIA [None]
  - NEUTROPENIA [None]
  - THROMBOCYTOPENIA [None]
